FAERS Safety Report 6279292-2 (Version None)
Quarter: 2009Q3

REPORT INFORMATION
  Report Type: 
  Country: None (occurrence: None)
  Receive Date: 20090723
  Receipt Date: 20081022
  Transmission Date: 20100115
  Serious: No
  Sender: FDA-Public Use
  Company Number: US-AMGEN-KDL314969

PATIENT
  Sex: Male

DRUGS (2)
  1. EPOGEN [Suspect]
     Indication: RENAL FAILURE CHRONIC
     Dates: start: 20080910
  2. IRON [Concomitant]
     Route: 048

REACTIONS (3)
  - INJECTION SITE RASH [None]
  - PRURITUS GENERALISED [None]
  - RASH [None]
